FAERS Safety Report 5650431-7 (Version None)
Quarter: 2008Q1

REPORT INFORMATION
  Report Type: 
  Country: None (occurrence: None)
  Receive Date: 20080303
  Receipt Date: 20080224
  Transmission Date: 20080703
  Serious: Yes (Other)
  Sender: FDA-Public Use
  Company Number: 2008SP003946

PATIENT
  Sex: Female

DRUGS (2)
  1. NASONEX [Suspect]
     Indication: DRUG USE FOR UNKNOWN INDICATION
  2. ALVESCO [Suspect]
     Indication: DRUG USE FOR UNKNOWN INDICATION
     Dosage: 200 MCG QD

REACTIONS (1)
  - ASTHMA [None]
